FAERS Safety Report 5365889-0 (Version None)
Quarter: 2007Q2

REPORT INFORMATION
  Report Type: 
  Country: None (occurrence: None)
  Receive Date: 20070621
  Receipt Date: 20070613
  Transmission Date: 20071010
  Serious: Yes (Hospitalization)
  Sender: FDA-Public Use
  Company Number: GB-MERCK-0508GBR00067

PATIENT
  Sex: Female

DRUGS (4)
  1. FOSAMAX [Suspect]
     Indication: OSTEOPOROSIS
     Route: 048
     Dates: start: 20030101, end: 20031201
  2. FOSAMAX [Suspect]
     Route: 048
     Dates: end: 20050808
  3. ANASTROZOLE [Concomitant]
     Route: 065
  4. ASPIRIN [Concomitant]
     Indication: MYOCARDIAL ISCHAEMIA
     Route: 065
     Dates: start: 20030623

REACTIONS (4)
  - CHEST PAIN [None]
  - GASTRIC ULCER [None]
  - OESOPHAGEAL ULCER [None]
  - PHLEBITIS [None]
